FAERS Safety Report 4759210-6 (Version None)
Quarter: 2005Q3

REPORT INFORMATION
  Report Type: 
  Country: None (occurrence: None)
  Receive Date: 20050831
  Receipt Date: 20050817
  Transmission Date: 20060218
  Serious: Yes (Life-Threatening, Hospitalization, Other)
  Sender: FDA-Public Use
  Company Number: 12143

PATIENT
  Age: 52 Year
  Sex: Male

DRUGS (4)
  1. METHOTREXATE [Suspect]
     Indication: LYMPHOMA
     Dosage: 4120 MG DAILY IV
     Route: 042
     Dates: start: 20050609, end: 20050609
  2. ONCOVIN [Concomitant]
  3. NATULAN [Concomitant]
  4. DECADRON [Concomitant]

REACTIONS (7)
  - COOMBS DIRECT TEST POSITIVE [None]
  - COOMBS INDIRECT TEST POSITIVE [None]
  - HAEMOLYTIC ANAEMIA [None]
  - LIVER DISORDER [None]
  - PLATELET COUNT DECREASED [None]
  - PNEUMONIA [None]
  - WHITE BLOOD CELL COUNT DECREASED [None]
